FAERS Safety Report 4510325-7 (Version None)
Quarter: 2004Q4

REPORT INFORMATION
  Report Type: 
  Country: None (occurrence: None)
  Receive Date: 20041122
  Receipt Date: 20041116
  Transmission Date: 20050328
  Serious: Yes (Death)
  Sender: FDA-Public Use
  Company Number: US-JNJFOC-20041104103

PATIENT
  Sex: Male

DRUGS (1)
  1. TYLENOL (ACETAMINOPHEN) [Suspect]

REACTIONS (1)
  - OVERDOSE [None]
